FAERS Safety Report 4481844-7 (Version None)
Quarter: 2004Q3

REPORT INFORMATION
  Report Type: 
  Country: None (occurrence: None)
  Receive Date: 20040921
  Receipt Date: 20030812
  Transmission Date: 20050211
  Serious: Yes (Hospitalization)
  Sender: FDA-Public Use
  Company Number: 1632078503050041

PATIENT
  Age: 64 Year
  Sex: Male

DRUGS (4)
  1. THALOMID [Suspect]
     Indication: MULTIPLE MYELOMA
     Dosage: SEE IMAGE
     Route: 048
     Dates: start: 20030106, end: 20040101
  2. THALOMID [Suspect]
     Indication: MULTIPLE MYELOMA
     Dosage: SEE IMAGE
     Route: 048
     Dates: start: 20040101
  3. PAMIDRONATE DISODIUM [Concomitant]
  4. ZOMETA [Concomitant]

REACTIONS (26)
  - ABDOMINAL PAIN [None]
  - ARTHRALGIA [None]
  - BACK PAIN [None]
  - BALANCE DISORDER [None]
  - BONE PAIN [None]
  - CONSTIPATION [None]
  - DIZZINESS [None]
  - EYE PAIN [None]
  - FATIGUE [None]
  - HAIR COLOUR CHANGES [None]
  - HEADACHE [None]
  - HYPERGLYCAEMIA [None]
  - HYPERHIDROSIS [None]
  - HYPOAESTHESIA [None]
  - INTESTINAL OBSTRUCTION [None]
  - MALAISE [None]
  - METASTASIS [None]
  - MUSCLE CRAMP [None]
  - NAUSEA [None]
  - PAIN [None]
  - PERIPHERAL SENSORY NEUROPATHY [None]
  - PLATELET COUNT DECREASED [None]
  - RASH [None]
  - SOMNOLENCE [None]
  - VISION BLURRED [None]
  - VOMITING [None]
